FAERS Safety Report 25048523 (Version 1)
Quarter: 2025Q1

REPORT INFORMATION
  Report Type: Spontaneous
  Country: US (occurrence: None)
  Receive Date: 20250307
  Receipt Date: 20250307
  Transmission Date: 20250409
  Serious: Yes (Other)
  Sender: MDD OPERATIONS
  Company Number: US-MDD US Operations-MDD202502-000533

PATIENT
  Age: 83 Year
  Sex: Male

DRUGS (2)
  1. APOKYN [Suspect]
     Active Substance: APOMORPHINE HYDROCHLORIDE
     Indication: Parkinson^s disease
     Dates: start: 20250203, end: 202502
  2. CARBIDOPA\LEVODOPA [Concomitant]
     Active Substance: CARBIDOPA\LEVODOPA
     Dosage: NOT PROVIDED

REACTIONS (4)
  - Blood pressure fluctuation [Recovering/Resolving]
  - General physical health deterioration [Recovering/Resolving]
  - Tremor [Recovering/Resolving]
  - Lethargy [Unknown]

NARRATIVE: CASE EVENT DATE: 20250201
